FAERS Safety Report 10039097 (Version 2)
Quarter: 2014Q1

REPORT INFORMATION
  Report Type: Spontaneous
  Country: JP (occurrence: JP)
  Receive Date: 20140326
  Receipt Date: 20140326
  Transmission Date: 20141002
  Serious: Yes (Other)
  Sender: FDA-Public Use
  Company Number: PHHY2014JP031456

PATIENT
  Age: 64 Year
  Sex: Female

DRUGS (6)
  1. IMATINIB [Suspect]
     Indication: GASTROINTESTINAL STROMAL TUMOUR
     Dosage: 400 MG, PER DAY
     Route: 048
  2. IMATINIB [Suspect]
     Indication: METASTASES TO LIVER
     Dosage: 300 MG, PER DAY
     Route: 048
  3. IMATINIB [Suspect]
     Dosage: 200 MG, PER DAY
     Route: 048
  4. IMATINIB [Suspect]
     Dosage: 100 MG, PER DAY
     Route: 048
  5. IMATINIB [Suspect]
     Dosage: 300 MG, PER DAY
     Route: 048
  6. IMATINIB [Suspect]
     Dosage: 200 MG, PER DAY
     Route: 048

REACTIONS (5)
  - Gastrointestinal stromal tumour [Unknown]
  - Neoplasm recurrence [Unknown]
  - Malignant neoplasm progression [Unknown]
  - Oedema [Unknown]
  - Generalised erythema [Unknown]
